FAERS Safety Report 8274850-8 (Version None)
Quarter: 2012Q2

REPORT INFORMATION
  Report Type: 
  Country: None (occurrence: None)
  Receive Date: 20120411
  Receipt Date: 20120409
  Transmission Date: 20120825
  Serious: Yes (Life-Threatening, Hospitalization)
  Sender: FDA-Public Use
  Company Number: US-BAYER-2012-026625

PATIENT
  Age: 53 Year
  Sex: Female
  Weight: 61.224 kg

DRUGS (1)
  1. AVELOX [Suspect]
     Indication: INFECTION
     Dosage: 1 DF, QD
     Dates: start: 20120314

REACTIONS (9)
  - HYPERSENSITIVITY [None]
  - PRURITUS [None]
  - HYPOTENSION [None]
  - GENERALISED ERYTHEMA [None]
  - UNEVALUABLE EVENT [None]
  - DYSPNOEA [None]
  - CONVULSION [None]
  - LIP SWELLING [None]
  - ANXIETY [None]
